FAERS Safety Report 10449178 (Version 1)
Quarter: 2014Q3

REPORT INFORMATION
  Report Type: Spontaneous
  Country: FR (occurrence: FR)
  Receive Date: 20140912
  Receipt Date: 20140912
  Transmission Date: 20150326
  Serious: Yes (Other)
  Sender: FDA-Public Use
  Company Number: FR-BRISTOL-MYERS SQUIBB COMPANY-21363239

PATIENT
  Age: 74 Year
  Sex: Male

DRUGS (4)
  1. ALDACTONE [Concomitant]
     Active Substance: SPIRONOLACTONE
  2. CORDARONE [Concomitant]
     Active Substance: AMIODARONE HYDROCHLORIDE
  3. ELIQUIS [Suspect]
     Active Substance: APIXABAN
     Route: 048
     Dates: end: 20140714
  4. LASILIX [Concomitant]
     Active Substance: FUROSEMIDE

REACTIONS (3)
  - Haematuria [Recovered/Resolved]
  - Renal failure [Unknown]
  - Left ventricular hypertrophy [Recovered/Resolved]

NARRATIVE: CASE EVENT DATE: 20140712
